FAERS Safety Report 5454412-8 (Version None)
Quarter: 2007Q3

REPORT INFORMATION
  Report Type: 
  Country: None (occurrence: None)
  Receive Date: 20070917
  Receipt Date: 20070907
  Transmission Date: 20080115
  Serious: Yes (Death)
  Sender: FDA-Public Use
  Company Number: US-GENENTECH-246975

PATIENT
  Sex: Female

DRUGS (5)
  1. NUTROPIN AQ [Suspect]
     Indication: BODY HEIGHT BELOW NORMAL
     Dosage: 0.1 MG, QD
     Route: 058
     Dates: start: 20060929
  2. CORTEF [Concomitant]
     Indication: ADRENAL INSUFFICIENCY
     Dosage: 2.5 MG, BID
     Route: 065
  3. DDAVP (NEEDS NO REFRIGERATION) [Concomitant]
     Indication: DIABETES INSIPIDUS
     Dosage: 0.6 UNK, Q12H
  4. ALBUTEROL [Concomitant]
     Dosage: UNK, PRN
     Route: 065
  5. SYNTHROID [Concomitant]
     Indication: HYPOTHYROIDISM
     Dosage: 25 UNK, QD

REACTIONS (1)
  - RESPIRATORY DISTRESS [None]
